FAERS Safety Report 14275096 (Version 1)
Quarter: 2017Q4

REPORT INFORMATION
  Report Type: Spontaneous
  Country: US (occurrence: US)
  Receive Date: 20171212
  Receipt Date: 20171212
  Transmission Date: 20180321
  Serious: Yes (Other)
  Sender: FDA-Public Use
  Company Number: US-STRIDES ARCOLAB LIMITED-2017SP014565

PATIENT

DRUGS (2)
  1. PREDNISOLONE. [Suspect]
     Active Substance: PREDNISOLONE
     Indication: LUNG TRANSPLANT
     Dosage: 5 MG PER DAY
     Route: 065
  2. TACROLIMUS. [Suspect]
     Active Substance: TACROLIMUS
     Indication: LUNG TRANSPLANT
     Dosage: TROUGH 6 TO 8
     Route: 065

REACTIONS (9)
  - Necrotising retinitis [Unknown]
  - Vision blurred [Unknown]
  - Off label use [Unknown]
  - Iritis [Unknown]
  - Eye pain [Unknown]
  - Keratic precipitates [Unknown]
  - Ocular hyperaemia [Unknown]
  - Retinitis viral [Recovered/Resolved]
  - Varicella zoster virus infection [Unknown]
